FAERS Safety Report 7650554-7 (Version None)
Quarter: 2011Q3

REPORT INFORMATION
  Report Type: 
  Country: None (occurrence: None)
  Receive Date: 20110727
  Receipt Date: 20110712
  Transmission Date: 20111222
  Serious: Yes (Hospitalization)
  Sender: FDA-Public Use
  Company Number: IDA-00564

PATIENT
  Age: 80 Year
  Sex: Female

DRUGS (8)
  1. LOSARTAN POTASSIUM [Concomitant]
  2. CEBRALAT (CILOSTAZOL) [Concomitant]
  3. METFORMIN HCL [Concomitant]
  4. ASPIRIN [Concomitant]
  5. OMEPRAZOLE [Suspect]
     Indication: GASTRIC INFECTION
     Route: 048
     Dates: start: 20090101
  6. CHLORTHALIDONE [Concomitant]
  7. PROPRANOLOL [Suspect]
     Indication: HYPERTENSION
     Route: 048
     Dates: start: 20090101, end: 20090101
  8. METOPROLOL SUCCINATE [Suspect]
     Indication: HYPERTENSION
     Dosage: 25 MG DAILY
     Route: 048
     Dates: start: 20110611, end: 20110712

REACTIONS (3)
  - BLOOD PRESSURE INADEQUATELY CONTROLLED [None]
  - CONFUSIONAL STATE [None]
  - FACIAL ASYMMETRY [None]
